FAERS Safety Report 5797925-1 (Version None)
Quarter: 2008Q3

REPORT INFORMATION
  Report Type: 
  Country: None (occurrence: None)
  Receive Date: 20080702
  Receipt Date: 20080618
  Transmission Date: 20090109
  Serious: Yes (Hospitalization)
  Sender: FDA-Public Use
  Company Number: IT-ELI_LILLY_AND_COMPANY-IT200805005842

PATIENT
  Sex: Female

DRUGS (2)
  1. GEMZAR [Suspect]
     Indication: NON-SMALL CELL LUNG CANCER METASTATIC
     Dosage: 1700 MG, UNKNOWN
     Route: 042
     Dates: start: 20080328, end: 20080404
  2. CISPLATIN [Concomitant]
     Indication: NON-SMALL CELL LUNG CANCER METASTATIC
     Dosage: 170 MG, UNKNOWN
     Route: 042
     Dates: start: 20080328, end: 20080328

REACTIONS (4)
  - ACUTE PULMONARY OEDEMA [None]
  - CONVULSION [None]
  - HYPERSENSITIVITY [None]
  - PANCYTOPENIA [None]
